FAERS Safety Report 16024515 (Version 2)
Quarter: 2019Q3

REPORT INFORMATION
  Report Type: Spontaneous
  Country: US (occurrence: US)
  Receive Date: 20190301
  Receipt Date: 20190722
  Transmission Date: 20191004
  Serious: Yes (Hospitalization)
  Sender: FDA-Public Use
  Company Number: US-ACTELION-A-NJ2019-186217

PATIENT
  Age: 68 Year
  Sex: Female

DRUGS (3)
  1. UPTRAVI [Suspect]
     Active Substance: SELEXIPAG
     Indication: PULMONARY ARTERIAL HYPERTENSION
     Dosage: 200 MCG, BID
     Route: 048
     Dates: start: 20190119, end: 20190217
  2. ADEMPAS [Concomitant]
     Active Substance: RIOCIGUAT
     Dosage: 2.5 MG, TID
     Dates: start: 201806
  3. XARELTO [Concomitant]
     Active Substance: RIVAROXABAN

REACTIONS (6)
  - Cardiac failure [Unknown]
  - Pleural effusion [Unknown]
  - Acute pulmonary oedema [Unknown]
  - Unevaluable event [Unknown]
  - Oxygen saturation decreased [Unknown]
  - Hypoxia [Unknown]

NARRATIVE: CASE EVENT DATE: 201902
